FAERS Safety Report 8474539-6 (Version None)
Quarter: 2012Q2

REPORT INFORMATION
  Report Type: 
  Country: None (occurrence: None)
  Receive Date: 20120628
  Receipt Date: 20120619
  Transmission Date: 20120825
  Serious: Yes (Hospitalization, Other)
  Sender: FDA-Public Use
  Company Number: US-BAYER-2012-052643

PATIENT
  Age: 37 Year
  Sex: Female
  Weight: 56.689 kg

DRUGS (1)
  1. DROSPIRENONE AND ETHINYL ESTRADIOL [Suspect]
     Indication: CONTRACEPTION
     Dosage: UNK
     Dates: start: 20060306, end: 20100326

REACTIONS (14)
  - CONVULSION [None]
  - URINARY TRACT INFECTION [None]
  - HYPERTENSION [None]
  - APHASIA [None]
  - HEMIPARESIS [None]
  - ANXIETY [None]
  - DEEP VEIN THROMBOSIS [None]
  - CEREBRAL THROMBOSIS [None]
  - PAIN [None]
  - VAGINAL HAEMORRHAGE [None]
  - INJURY [None]
  - APRAXIA [None]
  - CEREBRAL INFARCTION [None]
  - CONFUSIONAL STATE [None]
